FAERS Safety Report 24383828 (Version 1)
Quarter: 2024Q3

REPORT INFORMATION
  Report Type: Spontaneous
  Country: US (occurrence: None)
  Receive Date: 20240930
  Receipt Date: 20240930
  Transmission Date: 20241017
  Serious: No
  Sender: Public
  Company Number: None

PATIENT
  Age: 32 Year
  Sex: Female
  Weight: 63 kg

DRUGS (1)
  1. MONISTAT 3 [Suspect]
     Active Substance: MICONAZOLE NITRATE
     Indication: Fungal infection
     Dosage: FREQUENCY : AT BEDTIME;?
     Route: 067
     Dates: start: 20240930, end: 20240930

REACTIONS (4)
  - Burning sensation [None]
  - Pruritus [None]
  - Discomfort [None]
  - Pain [None]

NARRATIVE: CASE EVENT DATE: 20240930
